FAERS Safety Report 16898065 (Version 1)
Quarter: 2019Q4

REPORT INFORMATION
  Report Type: Report from Study
  Country: IT (occurrence: GB)
  Receive Date: 20191009
  Receipt Date: 20191009
  Transmission Date: 20200122
  Serious: Yes (Other)
  Sender: FDA-Public Use
  Company Number: IT-SUNOVION-2019SUN004256

PATIENT

DRUGS (1)
  1. LATUDA [Suspect]
     Active Substance: LURASIDONE HYDROCHLORIDE
     Indication: PRODUCT USED FOR UNKNOWN INDICATION
     Dosage: 74 MG, QD
     Route: 048
     Dates: start: 20180705, end: 20180815

REACTIONS (7)
  - Abdominal pain [Unknown]
  - Suicidal behaviour [Unknown]
  - Seizure [Unknown]
  - Physical assault [Unknown]
  - Aggression [Unknown]
  - Vomiting [Unknown]
  - Psychogenic seizure [Unknown]

NARRATIVE: CASE EVENT DATE: 20180725
